FAERS Safety Report 24375534 (Version 3)
Quarter: 2025Q3

REPORT INFORMATION
  Report Type: Spontaneous
  Country: EU (occurrence: EU)
  Receive Date: 20240928
  Receipt Date: 20250721
  Transmission Date: 20251021
  Serious: Yes (Other)
  Sender: AUROBINDO
  Company Number: EU-ELI_LILLY_AND_COMPANY-ES202309012757

PATIENT
  Age: 75 Year
  Sex: Female

DRUGS (7)
  1. LETROZOLE [Suspect]
     Active Substance: LETROZOLE
     Indication: Breast cancer
     Route: 065
  2. ABEMACICLIB [Suspect]
     Active Substance: ABEMACICLIB
     Indication: Breast cancer
     Route: 048
  3. ABEMACICLIB [Suspect]
     Active Substance: ABEMACICLIB
     Indication: Breast cancer metastatic
     Route: 048
  4. ABEMACICLIB [Suspect]
     Active Substance: ABEMACICLIB
     Dosage: 300 MILLIGRAM, ONCE A DAY (150 MG, BID)
     Route: 048
     Dates: start: 20230906
  5. ABEMACICLIB [Suspect]
     Active Substance: ABEMACICLIB
     Route: 048
  6. ABEMACICLIB [Suspect]
     Active Substance: ABEMACICLIB
     Route: 048
  7. HEPARIN [Suspect]
     Active Substance: HEPARIN SODIUM
     Indication: Thrombosis
     Route: 065

REACTIONS (49)
  - Arthralgia [Recovering/Resolving]
  - Thrombosis [Recovering/Resolving]
  - Intra-abdominal haematoma [Recovering/Resolving]
  - Drug dependence [Recovering/Resolving]
  - Discomfort [Not Recovered/Not Resolved]
  - Blood pressure increased [Unknown]
  - Hyperphagia [Unknown]
  - Renal disorder [Unknown]
  - Memory impairment [Unknown]
  - Alopecia [Recovering/Resolving]
  - Abdominal discomfort [Recovering/Resolving]
  - Back pain [Recovering/Resolving]
  - Bone disorder [Recovering/Resolving]
  - Cough [Recovering/Resolving]
  - Constipation [Recovering/Resolving]
  - Diarrhoea [Recovering/Resolving]
  - Decreased appetite [Recovering/Resolving]
  - Decreased immune responsiveness [Recovered/Resolved]
  - Eye pruritus [Recovering/Resolving]
  - Eye pain [Recovering/Resolving]
  - Erythema [Recovering/Resolving]
  - Fatigue [Recovering/Resolving]
  - Feeling abnormal [Recovering/Resolving]
  - Groin pain [Recovering/Resolving]
  - Gait disturbance [Recovering/Resolving]
  - Lacrimation increased [Recovering/Resolving]
  - Mobility decreased [Recovering/Resolving]
  - Neck pain [Recovering/Resolving]
  - Onychoclasis [Recovering/Resolving]
  - Onychalgia [Recovering/Resolving]
  - Pain [Recovering/Resolving]
  - Pain in extremity [Recovering/Resolving]
  - Taste disorder [Recovering/Resolving]
  - Vomiting [Recovering/Resolving]
  - Ocular hyperaemia [Recovering/Resolving]
  - Hypoaesthesia [Recovering/Resolving]
  - Intestinal transit time abnormal [Recovering/Resolving]
  - Gait inability [Recovering/Resolving]
  - Abdominal pain [Recovered/Resolved]
  - Flatulence [Recovered/Resolved]
  - Dizziness [Recovered/Resolved]
  - Arthropathy [Unknown]
  - Musculoskeletal stiffness [Recovering/Resolving]
  - Feeding disorder [Recovering/Resolving]
  - Oral discomfort [Recovering/Resolving]
  - Salivary hypersecretion [Recovering/Resolving]
  - Tongue coated [Recovering/Resolving]
  - Lip dry [Recovering/Resolving]
  - Stomatitis [Recovering/Resolving]

NARRATIVE: CASE EVENT DATE: 20240229
